FAERS Safety Report 5290188-5 (Version None)
Quarter: 2007Q2

REPORT INFORMATION
  Report Type: 
  Country: None (occurrence: None)
  Receive Date: 20070402
  Receipt Date: 20070320
  Transmission Date: 20071010
  Serious: Yes (Other)
  Sender: FDA-Public Use
  Company Number: TPA2007A00558

PATIENT
  Age: 76 Year
  Sex: Female

DRUGS (2)
  1. ROZEREM [Suspect]
     Indication: INSOMNIA
     Dosage: 8 MG, PER ORAL
     Route: 048
     Dates: start: 20070101, end: 20070101
  2. COUMADIN [Concomitant]

REACTIONS (1)
  - CEREBRAL HAEMORRHAGE [None]
